FAERS Safety Report 7948395-6 (Version None)
Quarter: 2011Q4

REPORT INFORMATION
  Report Type: 
  Country: None (occurrence: None)
  Receive Date: 20111130
  Receipt Date: 20111121
  Transmission Date: 20120403
  Serious: Yes (Other)
  Sender: FDA-Public Use
  Company Number: US-BAYER-2010-006263

PATIENT
  Sex: Female
  Weight: 97.506 kg

DRUGS (1)
  1. YASMIN [Suspect]
     Dosage: UNK
     Dates: start: 20030101, end: 20050101

REACTIONS (7)
  - FEAR [None]
  - PAIN [None]
  - ANXIETY [None]
  - CHOLELITHIASIS [None]
  - DISCOMFORT [None]
  - ABDOMINAL PAIN [None]
  - EMOTIONAL DISTRESS [None]
